FAERS Safety Report 8310755-1 (Version None)
Quarter: 2012Q2

REPORT INFORMATION
  Report Type: 
  Country: None (occurrence: None)
  Receive Date: 20120425
  Receipt Date: 20120420
  Transmission Date: 20120825
  Serious: Yes (Life-Threatening, Hospitalization)
  Sender: FDA-Public Use
  Company Number: JP-PFIZER INC-2012028144

PATIENT
  Age: 67 Year
  Sex: Female
  Weight: 54 kg

DRUGS (4)
  1. LIPITOR [Suspect]
     Indication: HYPERLIPIDAEMIA
     Dosage: 2.5 MG, (HALF OF 5 MG TABLET) ON ALTERNATE DAYS
     Route: 048
     Dates: start: 20111216, end: 20111219
  2. NORVASC [Concomitant]
     Indication: HYPERTENSION
     Dosage: 2.5 MG, 1X/DAY
     Route: 048
  3. LIPITOR [Suspect]
     Dosage: 2.5 MG DAILY
     Route: 048
     Dates: start: 20110215
  4. HALCION [Concomitant]
     Dosage: 0.25 MG, AS NEEDED
     Route: 048

REACTIONS (2)
  - STEVENS-JOHNSON SYNDROME [None]
  - SHOCK [None]
